FAERS Safety Report 6168981-6 (Version None)
Quarter: 2009Q2

REPORT INFORMATION
  Report Type: 
  Country: None (occurrence: None)
  Receive Date: 20090424
  Receipt Date: 20090424
  Transmission Date: 20091009
  Serious: Yes (Hospitalization, Other)
  Sender: FDA-Public Use
  Company Number: None

PATIENT
  Age: 11 Year
  Sex: Female
  Weight: 25.6 kg

DRUGS (1)
  1. VANCOMYCIN [Suspect]
     Indication: FEBRILE NEUTROPENIA
     Dosage: 500 MG ONCE IV DRIP ONLY GIVEN ONCE
     Route: 041
     Dates: start: 20090418, end: 20090418

REACTIONS (3)
  - ANAPHYLACTIC REACTION [None]
  - INFUSION RELATED REACTION [None]
  - RESPIRATORY DISTRESS [None]
